FAERS Safety Report 4548765-2 (Version None)
Quarter: 2005Q1

REPORT INFORMATION
  Report Type: 
  Country: None (occurrence: None)
  Receive Date: 20041220
  Receipt Date: 20031103
  Transmission Date: 20050727
  Serious: Yes (Hospitalization, Other)
  Sender: FDA-Public Use
  Company Number: USA030432919

PATIENT
  Age: 26 Year
  Sex: Female
  Weight: 52.6173 kg

DRUGS (1)
  1. HUMULIN N [Suspect]
     Indication: DIABETES MELLITUS
     Dates: start: 19830101

REACTIONS (2)
  - BLOOD GLUCOSE DECREASED [None]
  - COMA [None]
